FAERS Safety Report 23518760 (Version 3)
Quarter: 2024Q1

REPORT INFORMATION
  Report Type: Spontaneous
  Country: IT (occurrence: IT)
  Receive Date: 20240213
  Receipt Date: 20240321
  Transmission Date: 20240409
  Serious: Yes (Hospitalization, Other)
  Sender: FDA-Public Use
  Company Number: IT-VELOXIS PHARMACEUTICALS, INC.-2023-VEL-00687

PATIENT
  Age: 43 Year
  Sex: Female

DRUGS (9)
  1. MYCOPHENOLATE MOFETIL [Suspect]
     Active Substance: MYCOPHENOLATE MOFETIL
     Indication: Immunosuppressant drug therapy
     Dosage: 360 MILLIGRAM, BID
     Route: 065
  2. MYCOPHENOLIC ACID [Suspect]
     Active Substance: MYCOPHENOLIC ACID
     Indication: Immunosuppressant drug therapy
     Dosage: UNK
     Route: 065
     Dates: start: 202211
  3. METHYLPREDNISOLONE [Suspect]
     Active Substance: METHYLPREDNISOLONE
     Indication: Immunosuppressant drug therapy
     Dosage: (16 MG 1/2 TABLET)
     Route: 065
  4. METHYLPREDNISOLONE [Suspect]
     Active Substance: METHYLPREDNISOLONE
     Dosage: UNK
     Route: 065
     Dates: start: 202211
  5. TACROLIMUS [Suspect]
     Active Substance: TACROLIMUS
     Indication: Prophylaxis against transplant rejection
     Dosage: (1MG+0.5 MG) QD
     Route: 065
     Dates: start: 2023
  6. TACROLIMUS [Suspect]
     Active Substance: TACROLIMUS
     Dosage: UNK
     Route: 065
     Dates: start: 202211
  7. LAPINE T-LYMPHOCYTE IMMUNE GLOBULIN [Concomitant]
     Active Substance: LAPINE T-LYMPHOCYTE IMMUNE GLOBULIN
     Indication: Drug specific antibody present
     Dosage: 4 MG/KG,
     Route: 065
     Dates: start: 20221106, end: 20221108
  8. MENINGOCOCCAL POLYSACCHARIDE VACCINE, GROUPS A, C, Y,W135 COMBINED [Concomitant]
     Active Substance: MENINGOCOCCAL POLYSACCHARIDE VACCINE, GROUPS A, C, Y,W135 COMBINED
     Indication: Meningococcal immunisation
     Dosage: UNK
     Route: 065
     Dates: start: 20221109, end: 20221109
  9. RITUXIMAB [Concomitant]
     Active Substance: RITUXIMAB
     Indication: Drug specific antibody present
     Dosage: 1 GRAM
     Route: 065
     Dates: start: 20221109

REACTIONS (5)
  - Kidney transplant rejection [Recovered/Resolved]
  - Renal transplant failure [Unknown]
  - Disease recurrence [Unknown]
  - Hyperparathyroidism secondary [Unknown]
  - Anaemia [Unknown]

NARRATIVE: CASE EVENT DATE: 20221110
